FAERS Safety Report 16736026 (Version 2)
Quarter: 2019Q3

REPORT INFORMATION
  Report Type: Spontaneous
  Country: IT (occurrence: IT)
  Receive Date: 20190823
  Receipt Date: 20190906
  Transmission Date: 20191005
  Serious: Yes (Death)
  Sender: FDA-Public Use
  Company Number: IT-MYLANLABS-2019M1078787

PATIENT
  Age: 56 Year
  Sex: Female

DRUGS (11)
  1. MYCOSTATIN [Concomitant]
     Active Substance: NYSTATIN
     Route: 048
  2. LYRICA [Concomitant]
     Active Substance: PREGABALIN
     Route: 048
  3. LANTUS [Concomitant]
     Active Substance: INSULIN GLARGINE
     Route: 058
  4. OMEPRAZOLE. [Concomitant]
     Active Substance: OMEPRAZOLE
     Route: 048
  5. TAVOR (LORAZEPAM) [Concomitant]
     Active Substance: LORAZEPAM
     Route: 048
  6. KETOROLAC [Suspect]
     Active Substance: KETOROLAC TROMETHAMINE
     Indication: CANCER PAIN
     Dosage: 630 MILLIGRAM, TOTAL
     Route: 042
     Dates: start: 20190318, end: 20190319
  7. CYMBALTA [Concomitant]
     Active Substance: DULOXETINE HYDROCHLORIDE
     Route: 048
  8. TACHIPIRINA [Concomitant]
     Active Substance: ACETAMINOPHEN
     Route: 048
  9. ABSTRAL [Concomitant]
     Active Substance: FENTANYL CITRATE
     Route: 048
  10. MORPHINE HYDROCHLORIDE [Suspect]
     Active Substance: MORPHINE HYDROCHLORIDE
     Indication: CANCER PAIN
     Dosage: 840 MILLIGRAM, TOTAL
     Route: 042
     Dates: start: 20190318, end: 20190319
  11. INSULIN LISPRO [Concomitant]
     Active Substance: INSULIN LISPRO
     Route: 058

REACTIONS (6)
  - Respiratory failure [Fatal]
  - Off label use [Fatal]
  - Medication error [Fatal]
  - Coma [Fatal]
  - Cardio-respiratory arrest [Fatal]
  - Overdose [Fatal]

NARRATIVE: CASE EVENT DATE: 20190319
